FAERS Safety Report 18522124 (Version 1)
Quarter: 2020Q4

REPORT INFORMATION
  Report Type: Spontaneous
  Country: US (occurrence: US)
  Receive Date: 20201119
  Receipt Date: 20201119
  Transmission Date: 20210114
  Serious: No
  Sender: FDA-Public Use
  Company Number: US-BRISTOL-MYERS SQUIBB COMPANY-BMS-2020-097612

PATIENT
  Sex: Male
  Weight: 74.83 kg

DRUGS (2)
  1. YERVOY [Suspect]
     Active Substance: IPILIMUMAB
     Indication: HEPATIC CANCER
     Dosage: 237 MILLIGRAM, Q2WK
     Route: 065
     Dates: start: 20201019
  2. OPDIVO [Suspect]
     Active Substance: NIVOLUMAB
     Indication: HEPATIC CANCER
     Dosage: 79 MILLIGRAM, Q2WK
     Route: 065
     Dates: start: 20201019

REACTIONS (1)
  - Intentional product use issue [Unknown]
